FAERS Safety Report 19479206 (Version 2)
Quarter: 2021Q3

REPORT INFORMATION
  Report Type: Report from Study
  Country: US (occurrence: US)
  Receive Date: 20210630
  Receipt Date: 20210907
  Transmission Date: 20211014
  Serious: Yes (Other)
  Sender: FDA-Public Use
  Company Number: US-ASTRAZENECA-2021A555550

PATIENT
  Sex: Female

DRUGS (1)
  1. CALQUENCE [Suspect]
     Active Substance: ACALABRUTINIB
     Indication: CHRONIC LYMPHOCYTIC LEUKAEMIA
     Route: 048
     Dates: start: 201701

REACTIONS (17)
  - Fibromyalgia [Unknown]
  - Lymphadenopathy [Unknown]
  - Headache [Recovered/Resolved]
  - Onychoclasis [Recovered/Resolved]
  - Illness [Unknown]
  - Influenza [Unknown]
  - Impaired quality of life [Unknown]
  - Stomatitis [Recovered/Resolved]
  - Mastication disorder [Unknown]
  - White blood cell count abnormal [Unknown]
  - Pain [Unknown]
  - Nausea [Recovered/Resolved]
  - Spinal osteoarthritis [Unknown]
  - Lymph node pain [Unknown]
  - Nasal ulcer [Recovered/Resolved]
  - Product dose omission issue [Unknown]
  - Contusion [Recovered/Resolved]
